FAERS Safety Report 10080056 (Version 1)
Quarter: 2014Q2

REPORT INFORMATION
  Report Type: Spontaneous
  Country: RS (occurrence: RS)
  Receive Date: 20140415
  Receipt Date: 20140415
  Transmission Date: 20141212
  Serious: Yes (Hospitalization)
  Sender: FDA-Public Use
  Company Number: RS-ACTAVIS-2014-07912

PATIENT
  Age: 46 Year
  Sex: Female

DRUGS (1)
  1. DOCETAXEL [Suspect]
     Indication: CANCER PAIN
     Dosage: 90 MG/M2/ 1 CYCLE
     Route: 065

REACTIONS (5)
  - Gastroenteritis [Unknown]
  - Haemorrhage [Unknown]
  - Leukopenia [Unknown]
  - Diarrhoea [Unknown]
  - Fatigue [Unknown]
